FAERS Safety Report 23619474 (Version 1)
Quarter: 2024Q1

REPORT INFORMATION
  Report Type: Spontaneous
  Country: AU (occurrence: AU)
  Receive Date: 20240311
  Receipt Date: 20240311
  Transmission Date: 20240410
  Serious: Yes (Death, Other)
  Sender: FDA-Public Use
  Company Number: AU-JNJFOC-20240311064

PATIENT
  Age: 67 Year
  Sex: Female
  Weight: 59 kg

DRUGS (12)
  1. IMBRUVICA [Suspect]
     Active Substance: IBRUTINIB
     Indication: Marginal zone lymphoma
     Route: 048
     Dates: start: 20180926, end: 20190410
  2. IFOSFAMIDE [Suspect]
     Active Substance: IFOSFAMIDE
     Indication: Marginal zone lymphoma
     Route: 065
     Dates: start: 20210222, end: 20210222
  3. CARBOPLATIN [Suspect]
     Active Substance: CARBOPLATIN
     Indication: Marginal zone lymphoma
     Route: 065
     Dates: start: 20210222, end: 20210222
  4. VINCRISTINE SULFATE [Suspect]
     Active Substance: VINCRISTINE SULFATE
     Indication: Marginal zone lymphoma
     Route: 065
     Dates: start: 20190617, end: 20190930
  5. CYCLOPHOSPHAMIDE [Suspect]
     Active Substance: CYCLOPHOSPHAMIDE
     Indication: Marginal zone lymphoma
     Route: 065
     Dates: start: 20190617, end: 20190930
  6. RITUXIMAB [Suspect]
     Active Substance: RITUXIMAB
     Indication: Marginal zone lymphoma
     Route: 065
     Dates: start: 20190617, end: 20190930
  7. RITUXIMAB [Suspect]
     Active Substance: RITUXIMAB
     Indication: Marginal zone lymphoma
     Route: 065
     Dates: start: 20160629, end: 20161001
  8. PREDNISONE [Suspect]
     Active Substance: PREDNISONE
     Indication: Marginal zone lymphoma
     Route: 065
     Dates: start: 20190617, end: 20190930
  9. ETOPOSIDE PHOSPHATE [Suspect]
     Active Substance: ETOPOSIDE PHOSPHATE
     Indication: Marginal zone lymphoma
     Route: 065
     Dates: start: 20210222, end: 20210222
  10. BENDAMUSTINE HYDROCHLORIDE [Suspect]
     Active Substance: BENDAMUSTINE HYDROCHLORIDE
     Indication: Marginal zone lymphoma
     Route: 065
     Dates: start: 20160629, end: 20161001
  11. VENETOCLAX [Suspect]
     Active Substance: VENETOCLAX
     Indication: Marginal zone lymphoma
     Route: 065
     Dates: start: 20180926, end: 20190410
  12. DOXORUBICIN HYDROCHLORIDE [Suspect]
     Active Substance: DOXORUBICIN HYDROCHLORIDE
     Indication: Product used for unknown indication
     Route: 065
     Dates: start: 20190617, end: 20190930

REACTIONS (3)
  - Death [Fatal]
  - Marginal zone lymphoma [Fatal]
  - Rash [Fatal]
